FAERS Safety Report 17203707 (Version 1)
Quarter: 2019Q4

REPORT INFORMATION
  Report Type: Spontaneous
  Country: SE (occurrence: SE)
  Receive Date: 20191226
  Receipt Date: 20191226
  Transmission Date: 20200122
  Serious: Yes (Hospitalization)
  Sender: FDA-Public Use
  Company Number: SE-MYLANLABS-2019M1127259

PATIENT
  Age: 17 Year
  Sex: Female

DRUGS (1)
  1. LERGIGAN 25 MG FILMDRAGERADE TABLETTER [Suspect]
     Active Substance: PROMETHAZINE HYDROCHLORIDE
     Indication: PRODUCT USED FOR UNKNOWN INDICATION
     Dosage: 2475 MILLIGRAM, TOTAL (99TABLETTER 25 MG LERGIGAN)
     Route: 048
     Dates: start: 20190729, end: 20190729

REACTIONS (5)
  - Disorganised speech [Unknown]
  - Intentional self-injury [Unknown]
  - Vomiting [Unknown]
  - Malaise [Unknown]
  - Intentional overdose [Unknown]

NARRATIVE: CASE EVENT DATE: 20190729
